FAERS Safety Report 13074568 (Version 1)
Quarter: 2016Q4

REPORT INFORMATION
  Report Type: Other
  Country: IT (occurrence: IT)
  Receive Date: 20161230
  Receipt Date: 20161230
  Transmission Date: 20170207
  Serious: Yes (Other)
  Sender: FDA-Public Use
  Company Number: IT-LUPIN PHARMACEUTICALS INC.-2016-05725

PATIENT
  Age: 56 Year
  Sex: Male

DRUGS (1)
  1. CEFUROXIME. [Suspect]
     Active Substance: CEFUROXIME
     Indication: PROPHYLAXIS

REACTIONS (2)
  - Cystoid macular oedema [Recovered/Resolved with Sequelae]
  - Retinal detachment [Recovered/Resolved with Sequelae]
